FAERS Safety Report 7777464-9 (Version None)
Quarter: 2011Q3

REPORT INFORMATION
  Report Type: 
  Country: None (occurrence: None)
  Receive Date: 20110926
  Receipt Date: 20110914
  Transmission Date: 20111222
  Serious: Yes (Hospitalization)
  Sender: FDA-Public Use
  Company Number: US-BAYER-2011-011269

PATIENT
  Age: 19 Year
  Sex: Female
  Weight: 55.782 kg

DRUGS (4)
  1. PEPCID [Concomitant]
     Route: 048
  2. YASMIN [Suspect]
     Dosage: UNK
     Dates: start: 20070601, end: 20070901
  3. PROCALAMINE [AMINO ACIDS NOS,CARBOHYDRATES NOS,ELECTROLYTES NOS] [Concomitant]
     Dosage: 85 ML, Q1HR
     Route: 042
  4. YASMIN [Suspect]
     Indication: CONTRACEPTION
     Dosage: UNK
     Dates: start: 20050801, end: 20070401

REACTIONS (5)
  - PANCREATITIS [None]
  - CHOLECYSTITIS [None]
  - CHOLECYSTITIS CHRONIC [None]
  - INJURY [None]
  - PAIN [None]
